FAERS Safety Report 10056055 (Version 2)
Quarter: 2014Q2

REPORT INFORMATION
  Report Type: Spontaneous
  Country: US (occurrence: US)
  Receive Date: 20140403
  Receipt Date: 20140418
  Transmission Date: 20141212
  Serious: No
  Sender: FDA-Public Use
  Company Number: US-BAYER-2014-045458

PATIENT
  Age: 41 Year
  Sex: Female
  Weight: 72.56 kg

DRUGS (1)
  1. ALKA-SELTZER PLUS SEVERE ALLERGY SINUS CONGESTION + HEADACHE LG [Suspect]
     Route: 048

REACTIONS (1)
  - Somnolence [Recovered/Resolved]
